FAERS Safety Report 17749305 (Version 1)
Quarter: 2020Q2

REPORT INFORMATION
  Report Type: Spontaneous
  Country: US (occurrence: US)
  Receive Date: 20200505
  Receipt Date: 20200505
  Transmission Date: 20200714
  Serious: Yes (Other)
  Sender: FDA-Public Use
  Company Number: US-AUROBINDO-AUR-APL-2020-019032

PATIENT
  Sex: Female

DRUGS (1)
  1. AMOXICILLIN TABLETS USP 875 MG [Suspect]
     Active Substance: AMOXICILLIN
     Indication: BACTERIAL INFECTION
     Dosage: 1 DOSAGE FORM, ONCE A DAY (01 TABLET PER DAY)
     Route: 065
     Dates: start: 20200406, end: 20200406

REACTIONS (2)
  - Allergic reaction to excipient [Recovered/Resolved]
  - Anaphylactic reaction [Recovered/Resolved]

NARRATIVE: CASE EVENT DATE: 20200406
